FAERS Safety Report 11896162 (Version 1)
Quarter: 2016Q1

REPORT INFORMATION
  Report Type: Spontaneous
  Country: US (occurrence: US)
  Receive Date: 20160107
  Receipt Date: 20160107
  Transmission Date: 20160526
  Serious: No
  Sender: FDA-Public Use
  Company Number: US-ROCHE-1497037

PATIENT
  Sex: Female

DRUGS (3)
  1. RITUXAN [Suspect]
     Active Substance: RITUXIMAB
     Indication: MULTIPLE SCLEROSIS
     Dosage: LAST DOSE: AUG/SEP 2014
     Route: 042
     Dates: start: 2014
  2. TYSABRI [Concomitant]
     Active Substance: NATALIZUMAB
     Route: 065
     Dates: start: 20100415, end: 20140522
  3. TYSABRI [Concomitant]
     Active Substance: NATALIZUMAB
     Route: 065
     Dates: start: 20141106

REACTIONS (1)
  - Fatigue [Unknown]

NARRATIVE: CASE EVENT DATE: 2014
